FAERS Safety Report 8808940 (Version 1)
Quarter: 2012Q4

REPORT INFORMATION
  Report Type: 
  Country: BR (occurrence: BR)
  Receive Date: 20120926
  Receipt Date: 20120926
  Transmission Date: 20130627
  Serious: Yes (Other)
  Sender: FDA-Public Use
  Company Number: PHHY2012BR082695

PATIENT
  Sex: Female

DRUGS (1)
  1. DIOVAN [Suspect]
     Indication: HYPERTENSION

REACTIONS (4)
  - Dementia Alzheimer^s type [Unknown]
  - Hypertension [Recovering/Resolving]
  - Cardiovascular disorder [None]
  - Arrhythmia [None]
